FAERS Safety Report 25503824 (Version 1)
Quarter: 2025Q3

REPORT INFORMATION
  Report Type: Spontaneous
  Country: US (occurrence: None)
  Receive Date: 20250702
  Receipt Date: 20250702
  Transmission Date: 20251020
  Serious: Yes (Hospitalization)
  Sender: FDA-CTU
  Company Number: None

PATIENT
  Age: 65 Year
  Sex: Male
  Weight: 121.7 kg

DRUGS (1)
  1. LENALIDOMIDE [Suspect]
     Active Substance: LENALIDOMIDE
     Dates: end: 20250606

REACTIONS (5)
  - Pneumonia [None]
  - Acute respiratory failure [None]
  - Parainfluenzae virus infection [None]
  - Neutropenia [None]
  - Hyponatraemia [None]

NARRATIVE: CASE EVENT DATE: 20250627
